FAERS Safety Report 24168255 (Version 2)
Quarter: 2024Q3

REPORT INFORMATION
  Report Type: Spontaneous
  Country: US (occurrence: None)
  Receive Date: 20240802
  Receipt Date: 20240809
  Transmission Date: 20241017
  Serious: Yes (Other)
  Sender: ASTRAZENECA
  Company Number: 2024A170079

PATIENT
  Age: 56 Year
  Sex: Male

DRUGS (2)
  1. FARXIGA [Suspect]
     Active Substance: DAPAGLIFLOZIN PROPANEDIOL
     Route: 048
  2. MAVENCLAD [Concomitant]
     Active Substance: CLADRIBINE

REACTIONS (2)
  - Cerebrovascular accident [Unknown]
  - Multiple sclerosis relapse [Unknown]
